FAERS Safety Report 5839128-8 (Version None)
Quarter: 2008Q3

REPORT INFORMATION
  Report Type: 
  Country: None (occurrence: None)
  Receive Date: 20080808
  Receipt Date: 20080728
  Transmission Date: 20090109
  Serious: Yes (Other)
  Sender: FDA-Public Use
  Company Number: JP-PFIZER INC-2008063245

PATIENT
  Age: 44 Year
  Sex: Female

DRUGS (1)
  1. SOLU-CORTEF [Suspect]
     Indication: FACIAL PALSY
     Dosage: DAILY DOSE:200MG
     Route: 042
     Dates: start: 20080715, end: 20080725

REACTIONS (2)
  - OEDEMA [None]
  - WEIGHT INCREASED [None]
